FAERS Safety Report 7370218-7 (Version None)
Quarter: 2011Q1

REPORT INFORMATION
  Report Type: 
  Country: None (occurrence: None)
  Receive Date: 20110323
  Receipt Date: 20100312
  Transmission Date: 20110831
  Serious: No
  Sender: FDA-Public Use
  Company Number: US-ASTRAZENECA-2010SE10989

PATIENT
  Sex: Female

DRUGS (2)
  1. ZESTRIL [Suspect]
     Route: 048
  2. TOPROL-XL [Suspect]
     Route: 048

REACTIONS (7)
  - MIGRAINE [None]
  - NAUSEA [None]
  - MALAISE [None]
  - VOMITING [None]
  - COUGH [None]
  - HEART RATE IRREGULAR [None]
  - TREMOR [None]
